FAERS Safety Report 20835727 (Version 1)
Quarter: 2022Q2

REPORT INFORMATION
  Report Type: Spontaneous
  Country: US (occurrence: US)
  Receive Date: 20220516
  Receipt Date: 20220516
  Transmission Date: 20220721
  Serious: No
  Sender: FDA-Public Use
  Company Number: US-PFIZER INC-202101804565

PATIENT
  Age: 63 Year
  Sex: Male

DRUGS (1)
  1. DEPO-TESTOSTERONE [Suspect]
     Active Substance: TESTOSTERONE CYPIONATE
     Indication: Hormone replacement therapy
     Dosage: UNK (200 MG/ML(TAKES 100 TWICE A MONTH))

REACTIONS (4)
  - Feeling hot [Unknown]
  - Hyperhidrosis [Unknown]
  - Hot flush [Unknown]
  - Off label use [Unknown]
